FAERS Safety Report 17245933 (Version 1)
Quarter: 2020Q1

REPORT INFORMATION
  Report Type: Spontaneous
  Country: JP (occurrence: JP)
  Receive Date: 20200108
  Receipt Date: 20200108
  Transmission Date: 20200409
  Serious: Yes (Life-Threatening, Hospitalization, Other)
  Sender: FDA-Public Use
  Company Number: JP-ACCORD-169007

PATIENT
  Age: 62 Month
  Sex: Male

DRUGS (2)
  1. PIRARUBICIN [Suspect]
     Active Substance: PIRARUBICIN
     Indication: HEPATOBLASTOMA
  2. CISPLATIN. [Suspect]
     Active Substance: CISPLATIN
     Indication: HEPATOBLASTOMA

REACTIONS (1)
  - T-cell type acute leukaemia [Recovering/Resolving]
